FAERS Safety Report 16948870 (Version 1)
Quarter: 2019Q4

REPORT INFORMATION
  Report Type: Spontaneous
  Country: CN (occurrence: CN)
  Receive Date: 20191023
  Receipt Date: 20191023
  Transmission Date: 20200122
  Serious: Yes (Other)
  Sender: FDA-Public Use
  Company Number: NVSC2019CN002555

PATIENT
  Sex: Female

DRUGS (2)
  1. CERITINIB [Suspect]
     Active Substance: CERITINIB
     Indication: LUNG ADENOCARCINOMA
     Dosage: UNK
     Route: 048
     Dates: start: 201907
  2. CRIZOTINIB [Suspect]
     Active Substance: CRIZOTINIB
     Indication: LUNG ADENOCARCINOMA
     Dosage: UNK
     Route: 048
     Dates: start: 201906

REACTIONS (11)
  - Malignant neoplasm progression [Unknown]
  - Liver injury [Unknown]
  - Pericardial effusion [Unknown]
  - Bone pain [Unknown]
  - White blood cell count increased [Unknown]
  - C-reactive protein increased [Unknown]
  - Back pain [Unknown]
  - Pyrexia [Unknown]
  - Musculoskeletal pain [Unknown]
  - Pleural effusion [Unknown]
  - Lung adenocarcinoma [Unknown]
